FAERS Safety Report 20842924 (Version 1)
Quarter: 2022Q2

REPORT INFORMATION
  Report Type: Spontaneous
  Country: US (occurrence: None)
  Receive Date: 20220517
  Receipt Date: 20220517
  Transmission Date: 20220721
  Serious: No
  Sender: FDA-Public Use
  Company Number: None

PATIENT
  Sex: Female

DRUGS (2)
  1. HUMIRA [Suspect]
     Active Substance: ADALIMUMAB
     Indication: Psoriatic arthropathy
     Dosage: 40MG EVERY TWO WEEKS SUBCUTANEOUS
     Route: 058
     Dates: start: 20220425
  2. HUMIRA [Suspect]
     Active Substance: ADALIMUMAB
     Indication: Polyarthritis

REACTIONS (1)
  - Therapy non-responder [None]
